FAERS Safety Report 5257079-7 (Version None)
Quarter: 2007Q1

REPORT INFORMATION
  Report Type: 
  Country: None (occurrence: None)
  Receive Date: 20070307
  Receipt Date: 20070221
  Transmission Date: 20070707
  Serious: Yes (Other)
  Sender: FDA-Public Use
  Company Number: PHEH2007US02297

PATIENT
  Age: 65 Year
  Sex: Female

DRUGS (1)
  1. ZOMETA [Suspect]
     Indication: OSTEOPOROSIS
     Dosage: 4 MG EVERY 6 MONTHS
     Route: 042
     Dates: start: 20050801, end: 20070201

REACTIONS (7)
  - BLOOD UREA DECREASED [None]
  - DYSKINESIA [None]
  - DYSPNOEA [None]
  - FEELING ABNORMAL [None]
  - MUSCLE TWITCHING [None]
  - PHARYNGEAL OEDEMA [None]
  - TREMOR [None]
